FAERS Safety Report 7804260-6 (Version None)
Quarter: 2011Q4

REPORT INFORMATION
  Report Type: 
  Country: None (occurrence: None)
  Receive Date: 20111010
  Receipt Date: 20110929
  Transmission Date: 20120403
  Serious: Yes (Hospitalization, Other)
  Sender: FDA-Public Use
  Company Number: PHHY2009GB00541

PATIENT
  Sex: Male

DRUGS (3)
  1. CLOZAPINE [Suspect]
     Dosage: 12.5 MG
  2. CLOZAPINE [Suspect]
     Route: 048
     Dates: start: 20010701
  3. CLOZAPINE [Suspect]
     Indication: SCHIZOPHRENIA
     Route: 048
     Dates: start: 19960524

REACTIONS (9)
  - WHITE BLOOD CELL COUNT DECREASED [None]
  - PLATELET COUNT INCREASED [None]
  - WALDENSTROM'S MACROGLOBULINAEMIA [None]
  - HAEMOGLOBIN DECREASED [None]
  - NEUTROPHIL COUNT INCREASED [None]
  - WHITE BLOOD CELL COUNT INCREASED [None]
  - URINARY TRACT INFECTION [None]
  - MALAISE [None]
  - NEUTROPHIL COUNT DECREASED [None]
